FAERS Safety Report 21070274 (Version 1)
Quarter: 2022Q3

REPORT INFORMATION
  Report Type: Spontaneous
  Country: BE (occurrence: BE)
  Receive Date: 20220712
  Receipt Date: 20220712
  Transmission Date: 20221027
  Serious: Yes (Hospitalization, Other)
  Sender: FDA-Public Use
  Company Number: BE-Accord-268942

PATIENT
  Age: 49 Year
  Sex: Male

DRUGS (1)
  1. TRAZODONE HYDROCHLORIDE [Suspect]
     Active Substance: TRAZODONE HYDROCHLORIDE
     Indication: Depression
     Dosage: VOLUNTARY INGESTION OF 5,000 MG OF IMMEDIATE-RELEASE

REACTIONS (5)
  - Intentional overdose [Unknown]
  - Respiratory rate decreased [Recovering/Resolving]
  - Hypotension [Recovered/Resolved]
  - Body temperature decreased [Recovering/Resolving]
  - Electrocardiogram QT prolonged [Unknown]
